FAERS Safety Report 12826552 (Version 1)
Quarter: 2016Q4

REPORT INFORMATION
  Report Type: Spontaneous
  Country: US (occurrence: US)
  Receive Date: 20161007
  Receipt Date: 20161007
  Transmission Date: 20170207
  Serious: No
  Sender: FDA-Public Use
  Company Number: US-WATSON-2016-05511

PATIENT
  Age: 58 Year
  Sex: Male

DRUGS (4)
  1. FENTANYL-25 (WATSON LABORATORIES) [Suspect]
     Active Substance: FENTANYL
     Indication: PAIN
     Dosage: 25 MCG, UNKNOWN
     Route: 062
     Dates: start: 20160128, end: 20160218
  2. FENTANYL-100 (WATSON LABORATORIES) [Suspect]
     Active Substance: FENTANYL
     Indication: PAIN
     Dosage: 100 MCG, ONE PATCH EVERY 48 HOURS
     Route: 062
     Dates: start: 201603
  3. FENTANYL-75 (WATSON LABORATORIES) [Suspect]
     Active Substance: FENTANYL
     Indication: PAIN
     Dosage: 75 MCG, UNKNOWN
     Route: 062
     Dates: end: 201603
  4. FENTANYL-50 (WATSON LABORATORIES) [Suspect]
     Active Substance: FENTANYL
     Indication: PAIN
     Dosage: 50 MCG, UNKNOWN
     Route: 062
     Dates: start: 20160218

REACTIONS (2)
  - Application site rash [Not Recovered/Not Resolved]
  - Drug effect variable [Recovered/Resolved]

NARRATIVE: CASE EVENT DATE: 201603
